FAERS Safety Report 5153202-3 (Version None)
Quarter: 2006Q4

REPORT INFORMATION
  Report Type: 
  Country: None (occurrence: None)
  Receive Date: 20061117
  Receipt Date: 20040726
  Transmission Date: 20070319
  Serious: Yes (Hospitalization)
  Sender: FDA-Public Use
  Company Number: US-ROCHE-375255

PATIENT
  Age: 38 Year
  Sex: Male
  Weight: 98.8 kg

DRUGS (3)
  1. DACLIZUMAB [Suspect]
     Dosage: TOTAL OF 4 DOSES
     Route: 042
     Dates: start: 20030728, end: 20030908
  2. PLACEBO [Suspect]
     Dosage: DOSE ON DAY 14 AND 42.
     Route: 042
     Dates: start: 20030810
  3. INSULIN [Concomitant]
     Dosage: BASED ON BLOOD SUGAR LEVELS

REACTIONS (1)
  - PNEUMONIA [None]
